FAERS Safety Report 7487148-2 (Version None)
Quarter: 2011Q2

REPORT INFORMATION
  Report Type: 
  Country: None (occurrence: None)
  Receive Date: 20110510
  Receipt Date: 20110425
  Transmission Date: 20111010
  Serious: Yes (Hospitalization, Other)
  Sender: FDA-Public Use
  Company Number: 2010AL002995

PATIENT
  Sex: Female
  Weight: 53.5244 kg

DRUGS (20)
  1. SELEGILINE [Concomitant]
  2. SYNTHROID [Concomitant]
  3. DOMPERIDONE [Concomitant]
  4. DARVOCET [Concomitant]
  5. PREMARIN [Concomitant]
  6. LEVOTHYROXINE SODIUM [Concomitant]
  7. OMEPRAZOLE [Concomitant]
  8. FLEXERIL [Concomitant]
  9. CALCIUM CARBONATE [Concomitant]
  10. LISINOPRIL [Concomitant]
  11. AMYTRIPTILINE [Concomitant]
  12. ELAVIL [Concomitant]
  13. METOCLOPRAMIDE [Suspect]
     Indication: IMPAIRED GASTRIC EMPTYING
     Dosage: 20 MG, QID, PO
     Route: 048
     Dates: start: 19980101, end: 20090401
  14. LANTUS [Concomitant]
  15. HUMALOG [Concomitant]
  16. PROPULSID [Concomitant]
  17. RESTORIL [Concomitant]
  18. FOSAMAX [Concomitant]
  19. NSAIDS [Concomitant]
  20. LOVASTATIN [Concomitant]

REACTIONS (35)
  - MENTAL STATUS CHANGES [None]
  - URINARY TRACT INFECTION [None]
  - EXTRAPYRAMIDAL DISORDER [None]
  - EMOTIONAL DISORDER [None]
  - PERNICIOUS ANAEMIA [None]
  - VOMITING [None]
  - COLONIC POLYP [None]
  - NAUSEA [None]
  - HYPOGLYCAEMIC COMA [None]
  - APTYALISM [None]
  - UPPER LIMB FRACTURE [None]
  - TREATMENT NONCOMPLIANCE [None]
  - BLOOD THYROID STIMULATING HORMONE INCREASED [None]
  - CONSTIPATION [None]
  - ABDOMINAL PAIN [None]
  - MEMORY IMPAIRMENT [None]
  - ECONOMIC PROBLEM [None]
  - INJURY [None]
  - BLOOD THYROID STIMULATING HORMONE DECREASED [None]
  - RENAL DISORDER [None]
  - HYPERCHOLESTEROLAEMIA [None]
  - CARPAL TUNNEL SYNDROME [None]
  - EMPHYSEMA [None]
  - SPINAL OSTEOARTHRITIS [None]
  - PNEUMOTHORAX [None]
  - BACK PAIN [None]
  - HYPERLIPIDAEMIA [None]
  - DECREASED APPETITE [None]
  - CONDITION AGGRAVATED [None]
  - DEHYDRATION [None]
  - CLUBBING [None]
  - TARDIVE DYSKINESIA [None]
  - DYSTONIA [None]
  - HYPOAESTHESIA [None]
  - DIABETES MELLITUS INADEQUATE CONTROL [None]
